FAERS Safety Report 12059403 (Version 1)
Quarter: 2016Q1

REPORT INFORMATION
  Report Type: Spontaneous
  Country: BG (occurrence: BG)
  Receive Date: 20160210
  Receipt Date: 20160210
  Transmission Date: 20160526
  Serious: Yes (Death, Other)
  Sender: FDA-Public Use
  Company Number: BG-ACTAVIS-2016-02722

PATIENT

DRUGS (1)
  1. THIORIDAZINE (UNKNOWN) [Suspect]
     Active Substance: THIORIDAZINE
     Indication: PATIENT RESTRAINT
     Dosage: UNK
     Route: 065
     Dates: start: 20070201, end: 20090731

REACTIONS (3)
  - Overdose [Fatal]
  - Intentional product use issue [Fatal]
  - Malnutrition [Fatal]
